FAERS Safety Report 4604357-8 (Version None)
Quarter: 2005Q1

REPORT INFORMATION
  Report Type: 
  Country: None (occurrence: None)
  Receive Date: 20050310
  Receipt Date: 20050110
  Transmission Date: 20050727
  Serious: Yes (Other)
  Sender: FDA-Public Use
  Company Number: US-AMGEN-US107061

PATIENT
  Sex: Male

DRUGS (10)
  1. SENSIPAR [Suspect]
     Indication: HYPERPARATHYROIDISM SECONDARY
     Route: 048
     Dates: start: 20041027, end: 20050102
  2. PROTONIX [Concomitant]
     Route: 048
     Dates: start: 20041220
  3. RENAGEL [Concomitant]
     Route: 048
     Dates: start: 20041217
  4. VICODIN [Concomitant]
     Dates: start: 20040915
  5. DIOVAN [Concomitant]
     Route: 048
     Dates: start: 20040915
  6. ALBUTEROL [Concomitant]
  7. ELAVIL [Concomitant]
     Route: 048
     Dates: start: 20040719
  8. ALLOPURINOL [Concomitant]
     Dates: start: 20040220
  9. EPOGEN [Concomitant]
     Indication: DIALYSIS
     Route: 042
     Dates: start: 20040910
  10. ZEMPLAR (ABBOTT LABORATORIES) [Concomitant]

REACTIONS (5)
  - BLOOD PHOSPHORUS INCREASED [None]
  - FORMICATION [None]
  - HALLUCINATION [None]
  - HYPOCALCAEMIA [None]
  - PRURITUS [None]
